FAERS Safety Report 6756224-1 (Version None)
Quarter: 2010Q2

REPORT INFORMATION
  Report Type: 
  Country: None (occurrence: None)
  Receive Date: 20100604
  Receipt Date: 20100520
  Transmission Date: 20101027
  Serious: Yes (Hospitalization)
  Sender: FDA-Public Use
  Company Number: PHHY2010IE17194

PATIENT
  Sex: Male

DRUGS (3)
  1. RASILEZ [Suspect]
     Indication: HYPERTENSION
     Dosage: 150 MG
     Dates: start: 20100312
  2. OLMESARTAN MEDOXOMIL [Concomitant]
     Indication: HYPERTENSION
     Dosage: 20 MG
     Dates: start: 20070215
  3. TAMSULOSIN HYDROCHLORIDE [Concomitant]
     Indication: CARDIOMEGALY
     Dosage: 40 MG
     Route: 048
     Dates: start: 20080703

REACTIONS (2)
  - BLADDER DISORDER [None]
  - HAEMATURIA [None]
